FAERS Safety Report 5810868-X (Version None)
Quarter: 2008Q3

REPORT INFORMATION
  Report Type: 
  Country: None (occurrence: None)
  Receive Date: 20080710
  Receipt Date: 20080708
  Transmission Date: 20090109
  Serious: Yes (Death, Other)
  Sender: FDA-Public Use
  Company Number: 2008SP011073

PATIENT
  Age: 55 Year
  Sex: Female

DRUGS (4)
  1. PEG-INTRON (PEGINTERFERON ALFA-2B) [Suspect]
     Indication: HEPATITIS C
     Dosage: 75  MCG;QW;SC
     Route: 058
  2. REBETOL [Suspect]
     Indication: HEPATITIS C
     Dosage: 600 MG;BID;PO
     Route: 048
     Dates: end: 20080401
  3. SPIRONOLACTONE [Concomitant]
  4. FUROSEMIDE [Concomitant]

REACTIONS (5)
  - CHRONIC HEPATIC FAILURE [None]
  - CONDITION AGGRAVATED [None]
  - HAEMOLYTIC ANAEMIA [None]
  - HEPATIC CIRRHOSIS [None]
  - HEPATITIS [None]
